FAERS Safety Report 22063994 (Version 1)
Quarter: 2023Q1

REPORT INFORMATION
  Report Type: Spontaneous
  Country: FR (occurrence: FR)
  Receive Date: 20230306
  Receipt Date: 20230306
  Transmission Date: 20230417
  Serious: Yes (Other)
  Sender: FDA-Public Use
  Company Number: FR-CHUGAI-2023005578

PATIENT
  Age: 8 Year
  Sex: Male
  Weight: 45.8 kg

DRUGS (2)
  1. NEUPOGEN [Suspect]
     Active Substance: FILGRASTIM
     Indication: Infantile genetic agranulocytosis
     Dosage: 5-20 MICROGRAM/KILOGRAM
     Route: 065
     Dates: start: 20081218, end: 20170616
  2. LENOGRASTIM [Suspect]
     Active Substance: LENOGRASTIM
     Indication: Infantile genetic agranulocytosis
     Dosage: 5-20 MICROGRAM/KILOGRAM
     Route: 058
     Dates: start: 20081218, end: 20170616

REACTIONS (4)
  - Acute myeloid leukaemia [Not Recovered/Not Resolved]
  - Off label use [Unknown]
  - Off label use [Unknown]
  - Off label use [Unknown]

NARRATIVE: CASE EVENT DATE: 20170518
